FAERS Safety Report 10616860 (Version 2)
Quarter: 2015Q2

REPORT INFORMATION
  Report Type: Report from Study
  Country: TR (occurrence: TR)
  Receive Date: 20141201
  Receipt Date: 20150416
  Transmission Date: 20150821
  Serious: Yes (Hospitalization)
  Sender: FDA-Public Use
  Company Number: TR-NOVOPROD-430303

PATIENT
  Sex: Female
  Weight: 2.75 kg

DRUGS (4)
  1. NOVORAPID [Suspect]
     Active Substance: INSULIN ASPART
     Indication: GESTATIONAL DIABETES
     Dosage: 12 U, QD
     Route: 064
     Dates: start: 20140724, end: 20141002
  2. SANTAFER FORT [Concomitant]
     Indication: MINERAL SUPPLEMENTATION
     Dosage: 1X2
     Route: 064
     Dates: start: 20141002
  3. FOLBIOL [Concomitant]
     Active Substance: FOLIC ACID
     Indication: SUPPLEMENTATION THERAPY
     Dosage: 1X1
     Route: 064
     Dates: start: 201406, end: 20141002
  4. ENFEXIA [Concomitant]
     Indication: INFECTION
     Dosage: 1X1
     Route: 064
     Dates: start: 201406, end: 20141002

REACTIONS (4)
  - Premature baby [Unknown]
  - Neonatal respiratory distress syndrome [Recovered/Resolved]
  - Jaundice neonatal [Recovered/Resolved]
  - Foetal exposure during pregnancy [Recovered/Resolved]

NARRATIVE: CASE EVENT DATE: 20140724
